FAERS Safety Report 8295158-0 (Version None)
Quarter: 2012Q2

REPORT INFORMATION
  Report Type: 
  Country: None (occurrence: None)
  Receive Date: 20120418
  Receipt Date: 20120406
  Transmission Date: 20120825
  Serious: Yes (Other)
  Sender: FDA-Public Use
  Company Number: US-PFIZER INC-2012078648

PATIENT
  Sex: Female
  Weight: 49.9 kg

DRUGS (3)
  1. PROCHLORPERAZINE [Concomitant]
     Indication: NAUSEA
     Dosage: 10 MG, AS NEEDED
     Route: 048
     Dates: start: 20110713
  2. CRIZOTINIB [Suspect]
     Indication: NON-SMALL CELL LUNG CANCER
     Dosage: 200 MG, 2X/DAY
     Route: 048
     Dates: start: 20110624
  3. MUPIROCIN [Concomitant]
     Indication: ABSCESS LIMB
     Dosage: 2 %, 2X/DAY
     Route: 061
     Dates: start: 20111223

REACTIONS (1)
  - VASCULITIS [None]
